FAERS Safety Report 7019548-9 (Version None)
Quarter: 2010Q3

REPORT INFORMATION
  Report Type: 
  Country: None (occurrence: None)
  Receive Date: 20100923
  Receipt Date: 20100913
  Transmission Date: 20110219
  Serious: Yes (Hospitalization)
  Sender: FDA-Public Use
  Company Number: 1000016220

PATIENT
  Age: 28 Year
  Sex: Male

DRUGS (4)
  1. PROPRANOLOL HYDROCHLORIDE [Suspect]
     Indication: HYPERTHYROIDISM
  2. METHIMAZOLE (METHIMAZOLE) (METHIMAZOLE) [Concomitant]
  3. ATENOLOL [Concomitant]
  4. PREDNSIONE (PREDNSIONE) (PREDNISONE) [Concomitant]

REACTIONS (8)
  - ANXIETY [None]
  - COUGH [None]
  - MENTAL STATUS CHANGES [None]
  - MUSCULAR WEAKNESS [None]
  - PALPITATIONS [None]
  - PYREXIA [None]
  - THYROTOXIC PERIODIC PARALYSIS [None]
  - TREATMENT NONCOMPLIANCE [None]
